FAERS Safety Report 9913582 (Version 1)
Quarter: 2014Q1

REPORT INFORMATION
  Report Type: Spontaneous
  Country: US (occurrence: None)
  Receive Date: 20140218
  Receipt Date: 20140218
  Transmission Date: 20141002
  Serious: Yes (Hospitalization)
  Sender: FDA-Public Use
  Company Number: 2014011

PATIENT
  Sex: Male

DRUGS (1)
  1. CHLORHEXIDINE GLUCONATE [Suspect]
     Indication: WOUND TREATMENT
     Dates: start: 20140120

REACTIONS (3)
  - Local swelling [None]
  - Hypoaesthesia [None]
  - Application site reaction [None]
